FAERS Safety Report 4473052-0 (Version None)
Quarter: 2004Q4

REPORT INFORMATION
  Report Type: 
  Country: None (occurrence: None)
  Receive Date: 20041007
  Receipt Date: 20041007
  Transmission Date: 20050328
  Serious: Yes (Disabling)
  Sender: FDA-Public Use
  Company Number: None

PATIENT
  Age: 41 Year
  Sex: Male

DRUGS (2)
  1. CHLORAL HYDRATE ELIXIR 500 MG/ 5 ML [Suspect]
     Indication: INSOMNIA
     Dosage: 1000 MG (10 ML) PO
     Route: 048
     Dates: start: 20040901, end: 20040925
  2. PERCOCET-5 [Concomitant]

REACTIONS (1)
  - ARTHRALGIA [None]
